FAERS Safety Report 24573301 (Version 2)
Quarter: 2024Q4

REPORT INFORMATION
  Report Type: Spontaneous
  Country: MX (occurrence: MX)
  Receive Date: 20241101
  Receipt Date: 20241202
  Transmission Date: 20250114
  Serious: Yes (Other)
  Sender: NOVO NORDISK
  Company Number: MX-NOVOPROD-1310624

PATIENT
  Age: 16 Year
  Sex: Female
  Weight: 69 kg

DRUGS (13)
  1. SAXENDA [Suspect]
     Active Substance: LIRAGLUTIDE
     Indication: Insulin resistance
     Dosage: 1.8 MG, QD
     Dates: start: 2024, end: 2024
  2. SAXENDA [Suspect]
     Active Substance: LIRAGLUTIDE
     Indication: Weight control
     Dosage: PRESCRIBED AGAIN (RESTARTED)
     Dates: start: 2024
  3. DIANE (CYPROTERONE ACETATE\ETHINYL ESTRADIOL) [Concomitant]
     Active Substance: CYPROTERONE ACETATE\ETHINYL ESTRADIOL
     Indication: Menstruation irregular
     Dosage: ONE EVERY NIGHT FOR 21 DAYS
  4. MAGISTRAL [TIABENDAZOLE] [Concomitant]
     Dosage: DOSAGE: 2 CAPSULES AFTER BREAKFAST
  5. FOLIC ACID [Concomitant]
     Active Substance: FOLIC ACID
     Dosage: UNK
  6. BIOTIN [Concomitant]
     Active Substance: BIOTIN
     Dosage: UNK
  7. CUPRIC SULFATE ANHYDROUS [Concomitant]
     Active Substance: CUPRIC SULFATE ANHYDROUS
     Dosage: UNK
  8. ZINC SULFATE [Concomitant]
     Active Substance: ZINC SULFATE
     Dosage: UNK
  9. MAGNESIUM CITRATE [Concomitant]
     Active Substance: MAGNESIUM CITRATE
     Dosage: UNK
  10. SPIRONOLACTONE [Concomitant]
     Active Substance: SPIRONOLACTONE
     Dosage: UNK
  11. POTASSIUM FLUORIDE [Concomitant]
     Active Substance: POTASSIUM FLUORIDE
     Dosage: UNK
  12. VITAMIN D;VITAMIN E [Concomitant]
     Dosage: UNK
  13. POTASSIUM FLUORIDE [Concomitant]
     Active Substance: POTASSIUM FLUORIDE
     Dosage: UNK

REACTIONS (4)
  - Scoliosis [Recovered/Resolved]
  - Condition aggravated [Recovered/Resolved]
  - Developmental hip dysplasia [Recovered/Resolved]
  - Condition aggravated [Recovered/Resolved]
